FAERS Safety Report 6155622-7 (Version None)
Quarter: 2009Q2

REPORT INFORMATION
  Report Type: 
  Country: None (occurrence: None)
  Receive Date: 20090413
  Receipt Date: 20090413
  Transmission Date: 20091009
  Serious: Yes (Other)
  Sender: FDA-Public Use
  Company Number: None

PATIENT
  Age: 23 Year
  Sex: Female
  Weight: 52.1637 kg

DRUGS (2)
  1. FLUDROCORTISONE ACETATE [Suspect]
     Indication: HYPOTENSION
     Dosage: .1 MG 1X
     Dates: start: 20090402, end: 20090402
  2. MIDODRINE HYDROCHLORIDE [Suspect]
     Indication: POSTURAL ORTHOSTATIC TACHYCARDIA SYNDROME
     Dosage: 5 MG 3X DAILY 1.3 YEARS
     Dates: start: 20080119, end: 20090410

REACTIONS (6)
  - CARDIAC DISORDER [None]
  - DIZZINESS [None]
  - DRUG INTERACTION [None]
  - HALLUCINATION [None]
  - MOOD SWINGS [None]
  - PARANOIA [None]
